FAERS Safety Report 8295207-X (Version None)
Quarter: 2012Q2

REPORT INFORMATION
  Report Type: 
  Country: None (occurrence: None)
  Receive Date: 20120418
  Receipt Date: 20120409
  Transmission Date: 20120825
  Serious: Yes (Death)
  Sender: FDA-Public Use
  Company Number: PT-BAXTER-2012BAX000004

PATIENT
  Sex: Female

DRUGS (17)
  1. EXTRANEAL [Suspect]
     Route: 033
     Dates: start: 20110505, end: 20120314
  2. ISOSORBIDE DINITRATE [Concomitant]
     Route: 048
  3. PHYSIONEAL 40 GLUCOSE 1,36% P/V / 13,6 MG/ML [Suspect]
     Route: 033
     Dates: start: 20110505, end: 20120314
  4. OMEPRAZOLE [Concomitant]
  5. EPOETIN BETA [Concomitant]
     Route: 058
  6. RILMENIDINE [Concomitant]
     Route: 048
  7. IRON [Concomitant]
     Route: 048
  8. CALCITRIOL [Concomitant]
     Route: 048
  9. HYDROXYZINE [Concomitant]
     Route: 048
  10. FOLIC ACID [Concomitant]
     Route: 048
  11. INSULIN [Concomitant]
     Route: 065
  12. NIFEDIPINE [Concomitant]
     Route: 048
  13. FUROSEMIDE [Concomitant]
     Route: 048
  14. IRBESARTAN [Concomitant]
     Route: 048
  15. CALCIUM CARBONATE [Concomitant]
     Route: 065
  16. PHYSIONEAL 40 GLUCOSE 1,36% P/V / 13,6 MG/ML [Suspect]
     Route: 033
     Dates: start: 20110505, end: 20120314
  17. LACTULOSE [Concomitant]
     Route: 065

REACTIONS (4)
  - ASPIRATION [None]
  - DEATH [None]
  - MALAISE [None]
  - VOMITING [None]
